FAERS Safety Report 4986787-8 (Version None)
Quarter: 2006Q2

REPORT INFORMATION
  Report Type: 
  Country: None (occurrence: None)
  Receive Date: 20060428
  Receipt Date: 20060120
  Transmission Date: 20061013
  Serious: Yes (Hospitalization, Other)
  Sender: FDA-Public Use
  Company Number: US-MERCK-0601USA02615

PATIENT
  Age: 49 Year
  Sex: Male

DRUGS (5)
  1. VIOXX [Suspect]
     Indication: PAIN
     Route: 048
     Dates: start: 20040101
  2. VIOXX [Suspect]
     Route: 048
     Dates: start: 20000101, end: 20040408
  3. OXYCODONE [Suspect]
     Route: 065
  4. CEFTIN [Suspect]
     Indication: URINARY TRACT INFECTION
     Route: 048
     Dates: start: 20040801
  5. CEFTIN [Suspect]
     Route: 048
     Dates: end: 20040801

REACTIONS (25)
  - ANKYLOSING SPONDYLITIS [None]
  - ARTHRALGIA [None]
  - BLOOD CREATININE INCREASED [None]
  - BLOOD PRESSURE DECREASED [None]
  - BLOOD PRESSURE INCREASED [None]
  - CEREBROVASCULAR ACCIDENT [None]
  - CHEST PAIN [None]
  - CONSTIPATION [None]
  - DEPRESSION [None]
  - ESCHERICHIA INFECTION [None]
  - HEADACHE [None]
  - HYDRONEPHROSIS [None]
  - HYPERKALAEMIA [None]
  - KLEBSIELLA INFECTION [None]
  - NEUROGENIC BLADDER [None]
  - NEUROGENIC BOWEL [None]
  - OEDEMA PERIPHERAL [None]
  - PSEUDOMONAS INFECTION [None]
  - RENAL FAILURE [None]
  - SEPSIS SYNDROME [None]
  - STAPHYLOCOCCAL INFECTION [None]
  - THERAPEUTIC RESPONSE DECREASED [None]
  - URINARY TRACT INFECTION [None]
  - UROSEPSIS [None]
  - VOMITING PROJECTILE [None]
